FAERS Safety Report 8810706 (Version 2)
Quarter: 2012Q4

REPORT INFORMATION
  Report Type: 
  Country: US (occurrence: US)
  Receive Date: 20120927
  Receipt Date: 20121016
  Transmission Date: 20130627
  Serious: No
  Sender: FDA-Public Use
  Company Number: US-PFIZER INC-2012237708

PATIENT
  Age: 82 Year
  Sex: Female
  Weight: 70 kg

DRUGS (2)
  1. ARTHROTEC [Suspect]
     Indication: ARTHRITIS
     Dosage: 200ug/75mg, as needed
     Route: 048
  2. ATENOLOL [Concomitant]
     Indication: TACHYCARDIA
     Dosage: 50 mg, daily

REACTIONS (2)
  - Product solubility abnormal [Unknown]
  - Dyspepsia [Not Recovered/Not Resolved]
